FAERS Safety Report 4816314-7 (Version None)
Quarter: 2005Q4

REPORT INFORMATION
  Report Type: 
  Country: None (occurrence: None)
  Receive Date: 20051031
  Receipt Date: 20050802
  Transmission Date: 20060501
  Serious: Yes (Hospitalization, Disabling)
  Sender: FDA-Public Use
  Company Number: US-MERCK-0508USA01109

PATIENT
  Age: 50 Year
  Sex: Male
  Weight: 68 kg

DRUGS (13)
  1. VIOXX [Suspect]
     Indication: INTERVERTEBRAL DISC DEGENERATION
     Route: 048
     Dates: start: 20000313, end: 20030114
  2. VIOXX [Suspect]
     Route: 048
     Dates: start: 20000313, end: 20030114
  3. VIOXX [Suspect]
     Route: 048
     Dates: start: 20000313, end: 20030114
  4. ZOCOR [Concomitant]
     Route: 065
  5. PRINIVIL [Concomitant]
     Route: 065
  6. METOPROLOL [Concomitant]
     Route: 065
  7. LIPITOR [Concomitant]
     Route: 065
  8. ATENOLOL [Concomitant]
     Route: 065
  9. COZAAR [Concomitant]
     Route: 065
  10. BUSPAR [Concomitant]
     Route: 065
  11. CLONAZEPAM [Concomitant]
     Route: 065
  12. WELLBUTRIN [Concomitant]
     Route: 065
  13. SERZONE [Concomitant]
     Route: 065

REACTIONS (3)
  - MYOCARDIAL INFARCTION [None]
  - NEPHROLITHIASIS [None]
  - OVERDOSE [None]
